FAERS Safety Report 19253890 (Version 1)
Quarter: 2021Q2

REPORT INFORMATION
  Report Type: Spontaneous
  Country: CN (occurrence: CN)
  Receive Date: 20210513
  Receipt Date: 20210513
  Transmission Date: 20210717
  Serious: Yes (Disabling)
  Sender: FDA-Public Use
  Company Number: CN-FRESENIUS KABI-FK202104691

PATIENT
  Age: 12 Day
  Sex: Female
  Weight: 2.14 kg

DRUGS (2)
  1. CYSTEINE/GLYCINE/ALANINE/SERINE/ASPARTIC ACID/TYROSINE/LEUCINE/METHIONINE/PHENYLALANINE/HISTIDINE/VA [Concomitant]
     Active Substance: AMINO ACIDS, SOURCE UNSPECIFIED
     Indication: NUTRITIONAL SUPPLEMENTATION
     Route: 041
     Dates: start: 20200426, end: 20200604
  2. SMOFLIPID [Suspect]
     Active Substance: FISH OIL\MEDIUM-CHAIN TRIGLYCERIDES\OLIVE OIL\SOYBEAN OIL
     Indication: NUTRITIONAL SUPPLEMENTATION
     Dosage: FORM OF ADMIN. WAS REPORTED AS INJECTION IN THE SOURCE.
     Route: 041
     Dates: start: 20200508, end: 20200604

REACTIONS (2)
  - Liver injury [Unknown]
  - Contraindicated product administered [Unknown]

NARRATIVE: CASE EVENT DATE: 20200508
